FAERS Safety Report 21797012 (Version 1)
Quarter: 2022Q4

REPORT INFORMATION
  Report Type: Spontaneous
  Country: DK (occurrence: None)
  Receive Date: 20221230
  Receipt Date: 20221230
  Transmission Date: 20230112
  Serious: Yes (Other)
  Sender: FDA-Public Use
  Company Number: None

PATIENT
  Sex: Female

DRUGS (11)
  1. METHOTREXATE [Suspect]
     Active Substance: METHOTREXATE
     Indication: Juvenile idiopathic arthritis
     Route: 065
     Dates: start: 2004, end: 2008
  2. METHOTREXATE [Suspect]
     Active Substance: METHOTREXATE
     Indication: Juvenile idiopathic arthritis
     Route: 065
     Dates: start: 201111, end: 201111
  3. METHOTREXATE [Suspect]
     Active Substance: METHOTREXATE
     Indication: Juvenile idiopathic arthritis
     Route: 065
     Dates: start: 20210521
  4. METHOTREXATE [Suspect]
     Active Substance: METHOTREXATE
     Dosage: DOSE DECREASED TO 15 MG
     Route: 065
     Dates: start: 20210526, end: 20210712
  5. METHOTREXATE [Suspect]
     Active Substance: METHOTREXATE
     Route: 065
     Dates: end: 20210824
  6. METHOTREXATE SODIUM [Suspect]
     Active Substance: METHOTREXATE SODIUM
     Indication: Juvenile idiopathic arthritis
     Dosage: STRENGTH: 50 MG/ML?SLOWLY INCREASING BUT THE PATIENT WANTED TO DECREASE DOSE ON 22MAY2017
     Route: 065
     Dates: start: 20170410, end: 201707
  7. METHOTREXATE SODIUM [Suspect]
     Active Substance: METHOTREXATE SODIUM
     Indication: Juvenile idiopathic arthritis
     Dosage: DOSE: PAUSED IN AUG-2019. STRENGTH: 50 MG/ML
     Route: 065
     Dates: start: 201709, end: 201908
  8. METHOTREXATE SODIUM [Suspect]
     Active Substance: METHOTREXATE SODIUM
     Indication: Juvenile idiopathic arthritis
     Dosage: STRENGTH: 50 MG/ML.
     Route: 065
     Dates: end: 20191204
  9. METHOTREXATE SODIUM [Suspect]
     Active Substance: METHOTREXATE SODIUM
     Indication: Juvenile idiopathic arthritis
     Dosage: DOSE: UNKNOWN. PAUSED FROM APR2020-OCT2020.?STRENGTH: 50 MG/ML
     Route: 065
     Dates: start: 202003, end: 202004
  10. METHOTREXATE SODIUM [Suspect]
     Active Substance: METHOTREXATE SODIUM
     Dosage: STRENGTH: 50 MG/ML.
     Route: 065
     Dates: start: 202010, end: 20201103
  11. METHOTREXATE SODIUM [Suspect]
     Active Substance: METHOTREXATE SODIUM
     Dosage: STRENGTH: 50 MG/ML
     Route: 065
     Dates: start: 20210517, end: 20210521

REACTIONS (11)
  - Renal impairment [Unknown]
  - Fatigue [Unknown]
  - Heat stroke [Unknown]
  - Abdominal pain [Unknown]
  - Nausea [Unknown]
  - Cough [Unknown]
  - Liver function test increased [Unknown]
  - Decreased appetite [Unknown]
  - Diarrhoea [Unknown]
  - Vomiting [Unknown]
  - Product use in unapproved indication [Unknown]

NARRATIVE: CASE EVENT DATE: 20111101
